FAERS Safety Report 25069420 (Version 1)
Quarter: 2025Q1

REPORT INFORMATION
  Report Type: Spontaneous
  Country: US (occurrence: US)
  Receive Date: 20250312
  Receipt Date: 20250312
  Transmission Date: 20250409
  Serious: No
  Sender: MERCK SHARP & DOHME LLC
  Company Number: US-PFIZER INC-202500025861

PATIENT
  Age: 83 Year
  Sex: Female

DRUGS (3)
  1. TUKYSA [Suspect]
     Active Substance: TUCATINIB
     Dosage: TAKE 1 TABLET TWICE A DAY/ SHE IS ONLY TAKING 1 TABLET PER DOSE
     Dates: start: 202501
  2. TUKYSA [Suspect]
     Active Substance: TUCATINIB
     Dosage: 300 MG, 2X/DAY
     Dates: start: 202401
  3. KANJINTI [Suspect]
     Active Substance: TRASTUZUMAB-ANNS

REACTIONS (4)
  - Visual impairment [Not Recovered/Not Resolved]
  - Intentional product use issue [Unknown]
  - Off label use [Unknown]
  - Product use issue [Unknown]

NARRATIVE: CASE EVENT DATE: 20250101
